FAERS Safety Report 7046765-4 (Version None)
Quarter: 2010Q4

REPORT INFORMATION
  Report Type: 
  Country: None (occurrence: None)
  Receive Date: 20101007
  Receipt Date: 20100923
  Transmission Date: 20110411
  Serious: Yes (Hospitalization, Other)
  Sender: FDA-Public Use
  Company Number: 2010-00868

PATIENT
  Age: 76 Year
  Sex: Male

DRUGS (6)
  1. SIMVASTATIN [Suspect]
     Indication: CEREBROVASCULAR ACCIDENT
     Dosage: 40 MG (40 MG, DAILY), PER ORAL
     Route: 048
  2. WARFARIN SODIUM [Concomitant]
  3. CANDESARTAN CILEXETIL [Concomitant]
  4. OMEPRAZOLE [Concomitant]
  5. DIGOXIN [Concomitant]
  6. PARACETAMOL [Concomitant]

REACTIONS (2)
  - COUGH [None]
  - PNEUMONIA ASPIRATION [None]
